FAERS Safety Report 7341745-3 (Version None)
Quarter: 2011Q1

REPORT INFORMATION
  Report Type: 
  Country: None (occurrence: None)
  Receive Date: 20110309
  Receipt Date: 20110304
  Transmission Date: 20110831
  Serious: Yes (Hospitalization, Other)
  Sender: FDA-Public Use
  Company Number: US-PFIZER INC-2010170484

PATIENT
  Sex: Female

DRUGS (1)
  1. CHANTIX [Suspect]
     Indication: SMOKING CESSATION THERAPY
     Dosage: 1 MG,
     Route: 048
     Dates: start: 20090127, end: 20090301

REACTIONS (6)
  - LOSS OF CONSCIOUSNESS [None]
  - ANGINA PECTORIS [None]
  - ANXIETY [None]
  - DEPRESSION [None]
  - AGGRESSION [None]
  - MULTIPLE INJURIES [None]
